FAERS Safety Report 5578538-3 (Version None)
Quarter: 2007Q4

REPORT INFORMATION
  Report Type: 
  Country: None (occurrence: None)
  Receive Date: 20071227
  Receipt Date: 20071219
  Transmission Date: 20080405
  Serious: Yes (Death)
  Sender: FDA-Public Use
  Company Number: A-CH2007-18355

PATIENT
  Age: 85 Year
  Sex: Female
  Weight: 53 kg

DRUGS (2)
  1. TRACLEER [Suspect]
     Indication: PULMONARY HYPERTENSION
     Dosage: 62.5 MG, BID, ORAL; 125 MG, BID, ORAL
     Route: 048
     Dates: start: 20061224, end: 20070124
  2. TRACLEER [Suspect]
     Indication: PULMONARY HYPERTENSION
     Dosage: 62.5 MG, BID, ORAL; 125 MG, BID, ORAL
     Route: 048
     Dates: start: 20070125, end: 20070924

REACTIONS (4)
  - ARTHRITIS BACTERIAL [None]
  - MUSCULOSKELETAL PAIN [None]
  - PROTHROMBIN TIME PROLONGED [None]
  - RENAL FAILURE ACUTE [None]
